FAERS Safety Report 5490762-7 (Version None)
Quarter: 2007Q4

REPORT INFORMATION
  Report Type: 
  Country: None (occurrence: None)
  Receive Date: 20071019
  Receipt Date: 20071015
  Transmission Date: 20080405
  Serious: Yes (Other)
  Sender: FDA-Public Use
  Company Number: US-ASTRAZENECA-2007UW23935

PATIENT
  Age: 77 Year
  Sex: Female

DRUGS (2)
  1. TAMOXIFEN CITRATE [Suspect]
     Indication: BREAST CANCER
     Dosage: 3 DAYS BEFORE HERCEPTIN; 3 DAYS AFTER
     Route: 048
  2. HERCEPTIN [Concomitant]
     Dosage: ONCE EVERY THREE WEEKS
     Route: 042
     Dates: start: 20060101, end: 20070904

REACTIONS (5)
  - HEADACHE [None]
  - HOT FLUSH [None]
  - INFLAMMATION [None]
  - MUSCULOSKELETAL DISCOMFORT [None]
  - VISUAL DISTURBANCE [None]
